FAERS Safety Report 6301889-1 (Version None)
Quarter: 2009Q3

REPORT INFORMATION
  Report Type: 
  Country: None (occurrence: None)
  Receive Date: 20090807
  Receipt Date: 20090803
  Transmission Date: 20100115
  Serious: Yes (Death, Hospitalization)
  Sender: FDA-Public Use
  Company Number: IT-CELGENEUS-083-21880-09061890

PATIENT
  Sex: Female

DRUGS (6)
  1. REVLIMID [Suspect]
     Indication: MYELODYSPLASTIC SYNDROME
     Route: 048
     Dates: start: 20090610, end: 20090619
  2. OMEPRAZOLE [Concomitant]
     Indication: DRUG USE FOR UNKNOWN INDICATION
  3. DESFERAL [Concomitant]
     Indication: HAEMOSIDEROSIS
     Route: 065
  4. GRC TRANSFUSIONS [Concomitant]
  5. ALFA ERYTHROPOIETIN THERAPY [Concomitant]
     Route: 065
     Dates: start: 20081101
  6. ALFA ERYTHROPOIETIN THERAPY [Concomitant]
     Route: 065
     Dates: end: 20090501

REACTIONS (6)
  - CARDIAC FAILURE [None]
  - COUGH [None]
  - HEADACHE [None]
  - HYPERGLYCAEMIA [None]
  - NEUTROPENIC SEPSIS [None]
  - RESPIRATORY FAILURE [None]
